FAERS Safety Report 20966898 (Version 1)
Quarter: 2022Q2

REPORT INFORMATION
  Report Type: Spontaneous
  Country: ES (occurrence: ES)
  Receive Date: 20220616
  Receipt Date: 20220616
  Transmission Date: 20220721
  Serious: Yes (Life-Threatening, Hospitalization, Other)
  Sender: FDA-Public Use
  Company Number: None

PATIENT
  Age: 77 Year
  Sex: Male

DRUGS (2)
  1. ENOXAPARIN SODIUM [Suspect]
     Active Substance: ENOXAPARIN SODIUM
     Indication: Cardiac valve prosthesis user
     Dosage: 80 MG, Q12H
     Route: 058
     Dates: start: 20210703, end: 20210715
  2. SINTROM [Suspect]
     Active Substance: ACENOCOUMAROL
     Indication: Cardiac valve prosthesis user
     Dosage: UNK
     Route: 048
     Dates: start: 2007, end: 20210703

REACTIONS (4)
  - Anaemia [Recovering/Resolving]
  - Haematoma muscle [Recovering/Resolving]
  - Shock haemorrhagic [Recovered/Resolved]
  - Retroperitoneal haematoma [Recovering/Resolving]

NARRATIVE: CASE EVENT DATE: 20210709
